FAERS Safety Report 11403842 (Version 1)
Quarter: 2015Q3

REPORT INFORMATION
  Report Type: Spontaneous
  Country: US (occurrence: US)
  Receive Date: 20150821
  Receipt Date: 20150821
  Transmission Date: 20151125
  Serious: No
  Sender: FDA-Public Use
  Company Number: US-TEVA-584754USA

PATIENT
  Age: 65 Year
  Sex: Female

DRUGS (3)
  1. NEUTROGENA CLEANSER WITH BENZOYL PEROXIDE 1% [Concomitant]
     Route: 061
     Dates: start: 201501
  2. METRONIDAZOLE CREAM I% [Concomitant]
     Route: 065
  3. QNASL [Suspect]
     Active Substance: BECLOMETHASONE DIPROPIONATE
     Route: 065

REACTIONS (2)
  - Papule [Unknown]
  - Rosacea [Unknown]
